FAERS Safety Report 6241862-5 (Version None)
Quarter: 2009Q2

REPORT INFORMATION
  Report Type: 
  Country: None (occurrence: None)
  Receive Date: 20090623
  Receipt Date: 20090611
  Transmission Date: 20091009
  Serious: Yes (Hospitalization, Other)
  Sender: FDA-Public Use
  Company Number: US-PFIZER INC-2009226396

PATIENT
  Age: 6 Year
  Sex: Female

DRUGS (1)
  1. GLIBENCLAMIDE [Suspect]

REACTIONS (3)
  - ACCIDENTAL EXPOSURE [None]
  - HEMIPARESIS [None]
  - MENTAL STATUS CHANGES [None]
